FAERS Safety Report 8470318 (Version 2)
Quarter: 2019Q2

REPORT INFORMATION
  Report Type: Spontaneous
  Country: DE (occurrence: DE)
  Receive Date: 20120321
  Receipt Date: 20190628
  Transmission Date: 20190711
  Serious: Yes (Congenital Anomaly, Other)
  Sender: FDA-Public Use
  Company Number: GXKR2012DE001156

PATIENT
  Sex: Male
  Weight: 3.6 kg

DRUGS (3)
  1. FOLSAEURE [Concomitant]
     Active Substance: FOLIC ACID
     Indication: FOETAL EXPOSURE DURING PREGNANCY
     Route: 064
  2. VIMPAT [Suspect]
     Active Substance: LACOSAMIDE
     Indication: FOETAL EXPOSURE DURING PREGNANCY
     Dosage: MATERNAL DOSE: 200 [MG/D (100-0-100) ]/ FOR ONE YEAR
     Route: 064
     Dates: start: 200911, end: 20100811
  3. LAMOTRIGINE. [Suspect]
     Active Substance: LAMOTRIGINE
     Indication: FOETAL EXPOSURE DURING PREGNANCY
     Dosage: MATERNAL DOSE: 700 [MG/D (225-225-250) ]/ FOR TWO YEARS
     Route: 064

REACTIONS (6)
  - Atrial septal defect [Unknown]
  - Coarctation of the aorta [Unknown]
  - Foetal exposure during pregnancy [Unknown]
  - Maternal exposure during pregnancy [Unknown]
  - Bradycardia neonatal [Recovered/Resolved]
  - Hyperbilirubinaemia [Unknown]

NARRATIVE: CASE EVENT DATE: 200911
